FAERS Safety Report 12483409 (Version 1)
Quarter: 2016Q2

REPORT INFORMATION
  Report Type: Spontaneous
  Country: US (occurrence: US)
  Receive Date: 20160621
  Receipt Date: 20160621
  Transmission Date: 20160815
  Serious: No
  Sender: FDA-Public Use
  Company Number: US-009507513-1606USA004845

PATIENT
  Age: 29 Year
  Sex: Female

DRUGS (1)
  1. NEXPLANON [Suspect]
     Active Substance: ETONOGESTREL
     Indication: CONTRACEPTION
     Dosage: 1 ROD, EVERY 3 YEARS
     Route: 058
     Dates: start: 20140401

REACTIONS (3)
  - Implant site pain [Not Recovered/Not Resolved]
  - Implant site swelling [Not Recovered/Not Resolved]
  - Implant site bruising [Not Recovered/Not Resolved]

NARRATIVE: CASE EVENT DATE: 20160608
